FAERS Safety Report 4502447-1 (Version None)
Quarter: 2004Q4

REPORT INFORMATION
  Report Type: 
  Country: None (occurrence: None)
  Receive Date: 20041110
  Receipt Date: 20041028
  Transmission Date: 20050328
  Serious: No
  Sender: FDA-Public Use
  Company Number: 2004UW22467

PATIENT
  Age: 33 Year
  Sex: Male

DRUGS (8)
  1. NEXIUM [Suspect]
     Indication: ULCER
     Dosage: 40 MG PO
     Route: 048
     Dates: start: 20020101
  2. REVITRON [Concomitant]
  3. ATAZANAVIR [Concomitant]
  4. ALTACE [Concomitant]
  5. 3TC [Concomitant]
  6. TENOFAVIR [Concomitant]
  7. RETONOVIR [Concomitant]
  8. PEGATRON [Concomitant]

REACTIONS (6)
  - DIZZINESS [None]
  - HYPOAESTHESIA [None]
  - MEMORY IMPAIRMENT [None]
  - NEUROPATHY [None]
  - TREMOR [None]
  - VESTIBULAR DISORDER [None]
